FAERS Safety Report 20341359 (Version 8)
Quarter: 2022Q1

REPORT INFORMATION
  Report Type: Report from Study
  Country: US (occurrence: US)
  Receive Date: 20220117
  Receipt Date: 20220331
  Transmission Date: 20220423
  Serious: Yes (Other)
  Sender: FDA-Public Use
  Company Number: US-NOVARTISPH-NVSC2022US007719

PATIENT
  Age: 59 Year
  Sex: Female

DRUGS (2)
  1. ENTRESTO [Suspect]
     Active Substance: SACUBITRIL\VALSARTAN
     Indication: Product used for unknown indication
     Dosage: UNK
     Route: 065
  2. XARELTO [Concomitant]
     Active Substance: RIVAROXABAN
     Indication: Product used for unknown indication
     Route: 065

REACTIONS (19)
  - Atrial fibrillation [Not Recovered/Not Resolved]
  - Myocardial infarction [Unknown]
  - Haemorrhoids [Unknown]
  - Haemorrhage [Unknown]
  - Aphonia [Unknown]
  - COVID-19 [Unknown]
  - Malaise [Unknown]
  - Pain [Not Recovered/Not Resolved]
  - Overweight [Unknown]
  - Tooth loss [Unknown]
  - Jaw disorder [Unknown]
  - Dizziness [Not Recovered/Not Resolved]
  - Abdominal distension [Unknown]
  - Blood potassium abnormal [Recovering/Resolving]
  - Oropharyngeal pain [Unknown]
  - Daydreaming [Unknown]
  - Vitamin B complex deficiency [Unknown]
  - Decreased activity [Unknown]
  - Insomnia [Unknown]

NARRATIVE: CASE EVENT DATE: 20211101
